FAERS Safety Report 9301354 (Version 1)
Quarter: 2013Q2

REPORT INFORMATION
  Report Type: Spontaneous
  Country: TR (occurrence: TR)
  Receive Date: 20130521
  Receipt Date: 20130521
  Transmission Date: 20140414
  Serious: Yes (Other)
  Sender: FDA-Public Use
  Company Number: TR-VERTEX PHARMACEUTICALS INC-2013-006239

PATIENT
  Sex: Female

DRUGS (3)
  1. INCIVO [Suspect]
     Indication: HEPATITIS C
     Route: 048
  2. RIBAVIRIN [Suspect]
     Indication: HEPATITIS C
     Dosage: DOSAGE FORM: UNSPECIFIED
     Route: 065
  3. PEGINTERFERON ALFA [Suspect]
     Indication: HEPATITIS C

REACTIONS (1)
  - Vaginal haemorrhage [Unknown]
